FAERS Safety Report 23423904 (Version 1)
Quarter: 2024Q1

REPORT INFORMATION
  Report Type: Spontaneous
  Country: GR (occurrence: GR)
  Receive Date: 20240119
  Receipt Date: 20240119
  Transmission Date: 20240409
  Serious: Yes (Hospitalization)
  Sender: FDA-Public Use
  Company Number: GR-002147023-NVSC2024GR008742

PATIENT
  Sex: Female

DRUGS (1)
  1. XOLAIR [Suspect]
     Active Substance: OMALIZUMAB
     Indication: Chronic spontaneous urticaria
     Route: 065

REACTIONS (4)
  - Myelodysplastic syndrome [Unknown]
  - Pyrexia [Unknown]
  - Haematocrit decreased [Unknown]
  - Full blood count abnormal [Unknown]
